FAERS Safety Report 9337852 (Version 1)
Quarter: 2013Q2

REPORT INFORMATION
  Report Type: Spontaneous
  Country: US (occurrence: US)
  Receive Date: 20130607
  Receipt Date: 20130607
  Transmission Date: 20140414
  Serious: No
  Sender: FDA-Public Use
  Company Number: US-AMGEN-USASP2013029925

PATIENT
  Age: 70 Year
  Sex: Female

DRUGS (7)
  1. PROLIA [Suspect]
     Indication: OSTEOPOROSIS POSTMENOPAUSAL
     Dosage: UNK
     Dates: start: 201212
  2. VITAMIN D                          /00107901/ [Concomitant]
     Dosage: 1000 IU, QD
  3. CALTRATE WITH VITAMIN D [Concomitant]
  4. MIRTAZAPINE [Concomitant]
     Dosage: 30 MG, QD
  5. CITALOPRAM [Concomitant]
     Dosage: 1 UNK, QD
  6. MELOXICAM [Concomitant]
     Dosage: UNK UNK, QD
  7. B12                                /00056201/ [Concomitant]

REACTIONS (2)
  - Nerve compression [Unknown]
  - Spinal column stenosis [Unknown]
